FAERS Safety Report 6791774-3 (Version None)
Quarter: 2010Q2

REPORT INFORMATION
  Report Type: 
  Country: None (occurrence: None)
  Receive Date: 20100624
  Receipt Date: 20090506
  Transmission Date: 20101027
  Serious: Yes (Hospitalization, Other)
  Sender: FDA-Public Use
  Company Number: US-PFIZER INC-2008058762

PATIENT
  Sex: Female
  Weight: 73 kg

DRUGS (9)
  1. PROVERA [Suspect]
     Indication: HORMONE REPLACEMENT THERAPY
     Dosage: UNK
     Route: 048
     Dates: start: 19920101, end: 19980101
  2. PROVERA [Suspect]
     Indication: MENOPAUSE
  3. MEDROXYPROGESTERONE ACETATE [Suspect]
     Indication: HORMONE REPLACEMENT THERAPY
     Dosage: UNK
     Route: 048
     Dates: start: 19900101, end: 19990101
  4. PREMARIN [Suspect]
     Indication: HORMONE REPLACEMENT THERAPY
     Dosage: UNK
     Dates: start: 19920101, end: 19980101
  5. PREMARIN [Suspect]
     Indication: MENOPAUSE
  6. PREMPRO [Suspect]
     Indication: HORMONE REPLACEMENT THERAPY
     Dosage: UNK
     Dates: start: 19980101, end: 19990101
  7. PREMPRO [Suspect]
     Indication: MENOPAUSE
  8. ATENOLOL [Concomitant]
     Indication: BLOOD PRESSURE
     Dosage: UNK
     Dates: start: 19771001
  9. MAXZIDE [Concomitant]
     Indication: BLOOD PRESSURE
     Dosage: UNK
     Dates: start: 19771001

REACTIONS (1)
  - BREAST CANCER FEMALE [None]
